FAERS Safety Report 18225239 (Version 1)
Quarter: 2020Q3

REPORT INFORMATION
  Report Type: Spontaneous
  Country: IT (occurrence: IT)
  Receive Date: 20200903
  Receipt Date: 20200903
  Transmission Date: 20201103
  Serious: Yes (Other)
  Sender: FDA-Public Use
  Company Number: IT-ACCORD-199102

PATIENT
  Age: 44 Year
  Sex: Female

DRUGS (1)
  1. QUETIAPINE AHCL [Suspect]
     Active Substance: QUETIAPINE
     Indication: BIPOLAR DISORDER
     Dosage: STRENGTH: 25 MG
     Route: 048

REACTIONS (3)
  - Behaviour disorder [Recovering/Resolving]
  - Hallucination [Recovering/Resolving]
  - Panic disorder [Recovering/Resolving]

NARRATIVE: CASE EVENT DATE: 20190618
